FAERS Safety Report 8501134-2 (Version None)
Quarter: 2012Q3

REPORT INFORMATION
  Report Type: 
  Country: None (occurrence: None)
  Receive Date: 20120710
  Receipt Date: 20120705
  Transmission Date: 20120928
  Serious: Yes (Hospitalization)
  Sender: FDA-Public Use
  Company Number: PHHO2011FR12983

PATIENT
  Sex: Female
  Weight: 64 kg

DRUGS (7)
  1. SIMVASTATIN [Concomitant]
     Indication: DYSLIPIDAEMIA
     Dosage: UNK
     Dates: start: 20110103
  2. ATACAND [Concomitant]
     Indication: HYPERTENSION
     Dosage: 8 MG, QD
     Route: 048
  3. DESLORATADINE [Concomitant]
     Indication: PRURITUS
     Dosage: 5 MG, PRN
     Dates: start: 20101115
  4. ARTEX [Concomitant]
     Indication: HYPERTENSION
     Dosage: 0.5 DF, UNK
     Route: 048
  5. ESOMEPRAZOLE [Concomitant]
     Indication: GASTROOESOPHAGEAL REFLUX DISEASE
     Dosage: 40 MG, QD
     Route: 048
  6. TASIGNA [Suspect]
     Indication: CHRONIC MYELOID LEUKAEMIA
     Dosage: 800 MG, DAILY
     Route: 048
     Dates: start: 20100602, end: 20110614
  7. ASPIRIN [Concomitant]
     Indication: ARTERIAL DISORDER
     Dosage: 75 MG, DAILY
     Dates: start: 20101127

REACTIONS (1)
  - ARTERIAL DISORDER [None]
